FAERS Safety Report 25455781 (Version 2)
Quarter: 2025Q2

REPORT INFORMATION
  Report Type: Spontaneous
  Country: JP (occurrence: JP)
  Receive Date: 20250619
  Receipt Date: 20250627
  Transmission Date: 20250716
  Serious: Yes (Other)
  Sender: TEVA
  Company Number: JP-MMM-Otsuka-46RZXU98

PATIENT
  Age: 41 Year
  Sex: Female

DRUGS (3)
  1. AJOVY [Suspect]
     Active Substance: FREMANEZUMAB-VFRM
     Indication: Product used for unknown indication
     Route: 058
     Dates: start: 20250418
  2. AJOVY [Suspect]
     Active Substance: FREMANEZUMAB-VFRM
     Route: 058
     Dates: start: 202505
  3. AJOVY [Suspect]
     Active Substance: FREMANEZUMAB-VFRM
     Route: 058
     Dates: start: 20250607

REACTIONS (3)
  - Erythema [Not Recovered/Not Resolved]
  - Inflammation [Unknown]
  - Induration [Unknown]

NARRATIVE: CASE EVENT DATE: 20250501
